FAERS Safety Report 10144721 (Version 1)
Quarter: 2014Q2

REPORT INFORMATION
  Report Type: Spontaneous
  Country: US (occurrence: US)
  Receive Date: 20140430
  Receipt Date: 20140430
  Transmission Date: 20141212
  Serious: No
  Sender: FDA-Public Use
  Company Number: US-SANOFI-AVENTIS-2013SA067251

PATIENT
  Age: 62 Year
  Sex: Female

DRUGS (3)
  1. LOVENOX [Suspect]
     Route: 065
     Dates: start: 20130622
  2. LOVENOX [Suspect]
     Route: 065
     Dates: start: 20130623
  3. COUMADIN [Concomitant]

REACTIONS (2)
  - Joint swelling [Recovered/Resolved]
  - Peripheral swelling [Recovered/Resolved]
